FAERS Safety Report 4981571-3 (Version None)
Quarter: 2006Q2

REPORT INFORMATION
  Report Type: 
  Country: None (occurrence: None)
  Receive Date: 20060425
  Receipt Date: 20060412
  Transmission Date: 20061013
  Serious: Yes (Death)
  Sender: FDA-Public Use
  Company Number: DE-AMGEN-UK176160

PATIENT
  Sex: Female
  Weight: 46 kg

DRUGS (6)
  1. KEPIVANCE [Suspect]
     Indication: MUCOSAL INFLAMMATION
     Route: 042
     Dates: start: 20060201, end: 20060212
  2. FLUCONAZOLE [Concomitant]
     Route: 048
     Dates: start: 20060209, end: 20060223
  3. CIPROFLOXACIN HCL [Concomitant]
     Route: 042
     Dates: start: 20060209, end: 20060214
  4. COTRIM DS [Concomitant]
     Route: 048
     Dates: start: 20060209, end: 20060307
  5. COTRIM DS [Concomitant]
     Route: 042
     Dates: start: 20060209, end: 20060307
  6. VALTREX [Concomitant]
     Route: 042
     Dates: start: 20060209, end: 20060310

REACTIONS (3)
  - LUNG INFILTRATION [None]
  - PULMONARY FIBROSIS [None]
  - RESPIRATORY FAILURE [None]
